FAERS Safety Report 9349045 (Version 1)
Quarter: 2013Q2

REPORT INFORMATION
  Report Type: Spontaneous
  Country: US (occurrence: US)
  Receive Date: 20130614
  Receipt Date: 20130614
  Transmission Date: 20140414
  Serious: Yes (Other)
  Sender: FDA-Public Use
  Company Number: US-PERRIGO-13US005995

PATIENT
  Age: 51 Year
  Sex: Male

DRUGS (1)
  1. IMIQUIMOD 5% 2H1 [Suspect]
     Indication: SQUAMOUS CELL CARCINOMA
     Dosage: UNK, NIGHTLY
     Route: 061

REACTIONS (6)
  - Mania [Recovered/Resolved]
  - Thinking abnormal [Recovered/Resolved]
  - Abnormal behaviour [Recovered/Resolved]
  - Agitation [Recovered/Resolved]
  - Insomnia [Recovered/Resolved]
  - Overdose [Recovered/Resolved]
